FAERS Safety Report 5752322-X (Version None)
Quarter: 2008Q2

REPORT INFORMATION
  Report Type: 
  Country: None (occurrence: None)
  Receive Date: 20080529
  Receipt Date: 20080522
  Transmission Date: 20081010
  Serious: Yes (Death, Other)
  Sender: FDA-Public Use
  Company Number: MX-ASTRAZENECA-2007UW27269

PATIENT
  Age: 82 Year
  Sex: Male
  Weight: 60 kg

DRUGS (5)
  1. NEXIUM [Suspect]
     Indication: GASTROOESOPHAGEAL REFLUX DISEASE
     Route: 048
     Dates: start: 20070901, end: 20071001
  2. NEXIUM [Suspect]
     Indication: GASTRIC ULCER
     Route: 048
     Dates: start: 20070901, end: 20071001
  3. NEXIUM [Suspect]
     Route: 048
     Dates: start: 20071001, end: 20071101
  4. NEXIUM [Suspect]
     Route: 048
     Dates: start: 20071001, end: 20071101
  5. OMEPRAZOLE [Concomitant]
     Route: 048

REACTIONS (4)
  - DEATH [None]
  - GASTRIC XANTHOMA [None]
  - HIATUS HERNIA [None]
  - OESOPHAGITIS [None]
